FAERS Safety Report 9437275 (Version 2)
Quarter: 2013Q3

REPORT INFORMATION
  Report Type: Report from Study
  Country: FR (occurrence: FR)
  Receive Date: 20130802
  Receipt Date: 20130822
  Transmission Date: 20140515
  Serious: Yes (Life-Threatening, Hospitalization)
  Sender: FDA-Public Use
  Company Number: PHHO2011FR020982

PATIENT
  Age: 37 Year
  Sex: Female
  Weight: 45 kg

DRUGS (2)
  1. SOM230 [Suspect]
     Indication: PANCREATIC NEUROENDOCRINE TUMOUR
     Dosage: 60 MG, UNK
     Route: 030
     Dates: start: 20110921, end: 20111116
  2. AFINITOR [Suspect]
     Indication: PANCREATIC NEUROENDOCRINE TUMOUR
     Dosage: 10 MG, QD
     Route: 048
     Dates: start: 20110921, end: 20111209

REACTIONS (3)
  - Hepatocellular injury [Recovering/Resolving]
  - Alanine aminotransferase increased [Recovering/Resolving]
  - Aspartate aminotransferase increased [Recovering/Resolving]
